FAERS Safety Report 21282906 (Version 2)
Quarter: 2022Q3

REPORT INFORMATION
  Report Type: Spontaneous
  Country: US (occurrence: None)
  Receive Date: 20220901
  Receipt Date: 20220906
  Transmission Date: 20221027
  Serious: Yes (Hospitalization)
  Sender: FDA-Public Use
  Company Number: US-ROCHE-3169803

PATIENT
  Sex: Female

DRUGS (2)
  1. ACTEMRA [Suspect]
     Active Substance: TOCILIZUMAB
     Indication: Giant cell arteritis
     Dosage: STRENGTH: 162MG/0.9M
     Route: 058
     Dates: start: 20220607
  2. ACTEMRA [Suspect]
     Active Substance: TOCILIZUMAB

REACTIONS (9)
  - Pain [Unknown]
  - Diplopia [Unknown]
  - Fatigue [Unknown]
  - Dysgeusia [Unknown]
  - Skin atrophy [Unknown]
  - Haemorrhagic diathesis [Unknown]
  - Petechiae [Unknown]
  - Cough [Unknown]
  - Feeling cold [Unknown]
